FAERS Safety Report 6235746-6 (Version None)
Quarter: 2009Q2

REPORT INFORMATION
  Report Type: 
  Country: None (occurrence: None)
  Receive Date: 20090619
  Receipt Date: 20071012
  Transmission Date: 20091009
  Serious: Yes (Other)
  Sender: FDA-Public Use
  Company Number: US-ASTRAZENECA-2006UW22772

PATIENT
  Age: 13666 Day
  Sex: Female
  Weight: 102.5 kg

DRUGS (29)
  1. SEROQUEL [Suspect]
     Indication: SCHIZOPHRENIA
     Route: 048
     Dates: start: 19960101, end: 20040101
  2. SEROQUEL [Suspect]
     Indication: DEPRESSION
     Route: 048
     Dates: start: 19960101, end: 20040101
  3. SEROQUEL [Suspect]
     Indication: BIPOLAR DISORDER
     Route: 048
     Dates: start: 19960101, end: 20040101
  4. SEROQUEL [Suspect]
     Indication: INSOMNIA
     Route: 048
     Dates: start: 19960101, end: 20040101
  5. SEROQUEL [Suspect]
     Route: 048
     Dates: start: 20011002
  6. SEROQUEL [Suspect]
     Route: 048
     Dates: start: 20011002
  7. SEROQUEL [Suspect]
     Route: 048
     Dates: start: 20011002
  8. SEROQUEL [Suspect]
     Route: 048
     Dates: start: 20011002
  9. ABILIFY [Concomitant]
  10. RISPERDAL [Concomitant]
  11. EFFEXOR [Concomitant]
  12. EFFEXOR [Concomitant]
     Dates: start: 20051030
  13. PROCARDIA [Concomitant]
     Dates: start: 19980120
  14. BUSPAR [Concomitant]
     Dates: start: 19980120
  15. LOPRESSOR [Concomitant]
     Indication: HYPERTENSION
     Dates: start: 19980604
  16. PAXIL [Concomitant]
     Dates: start: 19980915
  17. DOXEPIN [Concomitant]
     Dates: start: 19990301
  18. GUAIFED PD [Concomitant]
     Route: 048
     Dates: start: 19990307
  19. XANAX [Concomitant]
     Dates: start: 19991002
  20. LOTREL [Concomitant]
     Dates: start: 19991002
  21. DARVOCET-N 100 [Concomitant]
     Indication: PAIN
     Dosage: 100 MG EVERY FOUR TO SIX HOURLY AS REQUIRED
     Route: 048
     Dates: start: 19991002
  22. DEMEROL [Concomitant]
     Dates: start: 20000126
  23. PREVACID [Concomitant]
     Route: 048
     Dates: start: 20000822
  24. ASPIRIN [Concomitant]
     Dates: start: 20000822
  25. KLONOPIN [Concomitant]
     Dates: start: 20011002
  26. AMBIEN [Concomitant]
     Dates: start: 20011002
  27. ZYRTEC [Concomitant]
     Indication: PRURITUS
     Dosage: 10 MG DAILY AS REQUIRED
     Dates: start: 20020718
  28. ULTRACET [Concomitant]
     Dates: start: 20030520
  29. TRAZODONE HCL [Concomitant]
     Dates: start: 20051030

REACTIONS (7)
  - ALCOHOLIC PANCREATITIS [None]
  - DIABETES MELLITUS [None]
  - PANCREATIC INSUFFICIENCY [None]
  - PANCREATITIS [None]
  - PANCREATITIS ACUTE [None]
  - PANCREATITIS CHRONIC [None]
  - TYPE 1 DIABETES MELLITUS [None]
